FAERS Safety Report 13838937 (Version 11)
Quarter: 2020Q4

REPORT INFORMATION
  Report Type: Spontaneous
  Country: US (occurrence: US)
  Receive Date: 20170807
  Receipt Date: 20201116
  Transmission Date: 20210113
  Serious: Yes (Hospitalization, Other)
  Sender: FDA-Public Use
  Company Number: US-PFIZER INC-2017338504

PATIENT
  Age: 61 Year
  Sex: Female
  Weight: 104 kg

DRUGS (5)
  1. LYRICA [Suspect]
     Active Substance: PREGABALIN
     Dosage: 300 MG, DAILY (75 MG IN THE MORNING, 75 MG AT LUNCH TIME, AND LYRICA 150 MG AT NIGHT)
  2. LYRICA [Suspect]
     Active Substance: PREGABALIN
     Indication: LUMBAR SPINAL STENOSIS
     Dosage: 75 MG, 2X/DAY
     Route: 048
  3. LYRICA [Suspect]
     Active Substance: PREGABALIN
     Dosage: 150 MG, 1X/DAY (TAKING LYRICA 150 MG IN THE MORNING)
  4. LYRICA [Suspect]
     Active Substance: PREGABALIN
     Indication: DIABETIC NEUROPATHY
     Dosage: 150 MG, 1X/DAY (1 CAP BY MOUTH AT NIGHT)
     Route: 048
  5. LYRICA [Suspect]
     Active Substance: PREGABALIN
     Indication: NEUROPATHY PERIPHERAL
     Dosage: 150 MG, 2X/DAY
     Route: 048
     Dates: start: 2016

REACTIONS (8)
  - Hypoaesthesia [Unknown]
  - Thrombosis [Unknown]
  - Therapeutic product effect incomplete [Unknown]
  - Sedation [Unknown]
  - Pain [Unknown]
  - Dizziness [Unknown]
  - Prescription drug used without a prescription [Not Recovered/Not Resolved]
  - Hypertension [Unknown]

NARRATIVE: CASE EVENT DATE: 2018
